FAERS Safety Report 4788324-X (Version None)
Quarter: 2005Q4

REPORT INFORMATION
  Report Type: 
  Country: None (occurrence: None)
  Receive Date: 20051005
  Receipt Date: 20050420
  Transmission Date: 20060501
  Serious: Yes (Other)
  Sender: FDA-Public Use
  Company Number: 200511400FR

PATIENT
  Age: 46 Year
  Sex: Female

DRUGS (3)
  1. ARAVA [Suspect]
     Indication: RHEUMATOID ARTHRITIS
     Route: 048
     Dates: start: 20020423, end: 20041228
  2. HUMIRA [Concomitant]
     Indication: RHEUMATOID ARTHRITIS
     Route: 058
     Dates: start: 20031010, end: 20040401
  3. APRANAX [Concomitant]
     Route: 048
     Dates: start: 20030101

REACTIONS (3)
  - ALOPECIA [None]
  - EOSINOPHIL COUNT INCREASED [None]
  - PRURITUS [None]
